FAERS Safety Report 7047068-4 (Version None)
Quarter: 2010Q4

REPORT INFORMATION
  Report Type: 
  Country: None (occurrence: None)
  Receive Date: 20101015
  Receipt Date: 20101007
  Transmission Date: 20110411
  Serious: Yes (Death, Hospitalization, Disabling)
  Sender: FDA-Public Use
  Company Number: US-JNJFOC-20080105509

PATIENT
  Sex: Female
  Weight: 62.14 kg

DRUGS (8)
  1. ORTHO EVRA [Suspect]
     Indication: CONTRACEPTION
     Route: 062
  2. ORTHO EVRA [Suspect]
     Route: 062
  3. LEVAQUIN [Concomitant]
     Indication: PYELONEPHRITIS
  4. ALBUTEROL [Concomitant]
  5. DIAZEPAM [Concomitant]
  6. SUBOXONE [Concomitant]
  7. CYCLOBENZAPRINE [Concomitant]
  8. VICODIN [Concomitant]

REACTIONS (6)
  - CARDIO-RESPIRATORY ARREST [None]
  - HYPOXIC-ISCHAEMIC ENCEPHALOPATHY [None]
  - MYOCARDIAL INFARCTION [None]
  - PNEUMONIA [None]
  - PULMONARY EMBOLISM [None]
  - RENAL INFARCT [None]
